FAERS Safety Report 8925557 (Version 1)
Quarter: 2012Q4

REPORT INFORMATION
  Report Type: 
  Country: US (occurrence: US)
  Receive Date: 20121126
  Receipt Date: 20121126
  Transmission Date: 20130627
  Serious: Yes (Death, Other)
  Sender: FDA-Public Use
  Company Number: CHPA2012US023979

PATIENT
  Age: 62 Year
  Sex: Male

DRUGS (2)
  1. MAALOX ANTACID [Suspect]
     Indication: DYSPEPSIA
     Dosage: Unk, PRN
     Route: 048
     Dates: start: 200107, end: 2009
  2. COUMADIN [Concomitant]
     Indication: ANTICOAGULANT THERAPY
     Dosage: Unk, Unk
     Dates: start: 200107, end: 2009

REACTIONS (2)
  - Sepsis [Fatal]
  - Cerebral haemorrhage [Recovered/Resolved]
